FAERS Safety Report 8892396 (Version 2)
Quarter: 2012Q4

REPORT INFORMATION
  Report Type: 
  Country: US (occurrence: US)
  Receive Date: 20121107
  Receipt Date: 20121121
  Transmission Date: 20130627
  Serious: Yes (Death, Hospitalization, Congenital Anomaly)
  Sender: FDA-Public Use
  Company Number: US-GLAXOSMITHKLINE-A1000159A

PATIENT
  Age: 0 Year
  Sex: Male

DRUGS (2)
  1. PAROXETINE HYDROCHLORIDE [Suspect]
     Indication: PRODUCT USED FOR UNKNOWN INDICATION
     Route: 064
     Dates: start: 200309
  2. PAXIL [Suspect]
     Indication: PRODUCT USED FOR UNKNOWN INDICATION
     Route: 064
     Dates: start: 2001, end: 2003

REACTIONS (9)
  - Congenital cardiovascular anomaly [Fatal]
  - Congenital pulmonary artery anomaly [Unknown]
  - Cardiac failure congestive [Unknown]
  - DiGeorge^s syndrome [Unknown]
  - Atrial septal defect [Unknown]
  - Ventricular septal defect [Unknown]
  - Congenital aortic valve incompetence [Unknown]
  - Heart disease congenital [Fatal]
  - Foetal exposure during pregnancy [Unknown]
